FAERS Safety Report 9463973 (Version 2)
Quarter: 2013Q3

REPORT INFORMATION
  Report Type: Spontaneous
  Country: US (occurrence: None)
  Receive Date: 20130819
  Receipt Date: 20130903
  Transmission Date: 20140515
  Serious: Yes (Death)
  Sender: FDA-Public Use
  Company Number: None

PATIENT
  Age: 78 Year
  Sex: Male
  Weight: 107.96 kg

DRUGS (5)
  1. 0.9% SODIUM CHLORIDE [Suspect]
     Indication: EPIDURAL INJECTION
     Dosage: 7.0 ML ONE IV
     Route: 042
     Dates: start: 20130701
  2. LIDOCAINE HCL [Suspect]
     Indication: LOCAL ANAESTHESIA
     Dosage: 9.0 ML ONE IV
     Route: 042
     Dates: start: 20130701
  3. BREVI-KATH MINI KIT [Concomitant]
  4. OMNIPAQUE (IOHEXOL) [Concomitant]
  5. 8.4% SODIUM BICARBONATE [Concomitant]

REACTIONS (5)
  - Back pain [None]
  - Pulmonary embolism [None]
  - Pseudomonas test positive [None]
  - CSF culture positive [None]
  - Meningitis [None]
